FAERS Safety Report 5857939-X (Version None)
Quarter: 2008Q3

REPORT INFORMATION
  Report Type: 
  Country: None (occurrence: None)
  Receive Date: 20080825
  Receipt Date: 20080825
  Transmission Date: 20090109
  Serious: No
  Sender: FDA-Public Use
  Company Number: None

PATIENT
  Age: 66 Year
  Sex: Male
  Weight: 74.8435 kg

DRUGS (1)
  1. PRAVASTATIN [Suspect]
     Dosage: 80 MG DAILY PO
     Route: 048

REACTIONS (1)
  - MUSCLE SPASMS [None]
